FAERS Safety Report 9667630 (Version 1)
Quarter: 2013Q4

REPORT INFORMATION
  Report Type: Spontaneous
  Country: BR (occurrence: BR)
  Receive Date: 20131104
  Receipt Date: 20131104
  Transmission Date: 20140711
  Serious: Yes (Other)
  Sender: FDA-Public Use
  Company Number: BR-PFIZER INC-2013308786

PATIENT
  Age: 67 Year
  Sex: Male

DRUGS (2)
  1. XALATAN [Suspect]
     Indication: GLAUCOMA
     Dosage: 1.5 UG (ONE DROP IN THE RIGHT EYE), 1X/DAY
     Route: 047
     Dates: start: 20090628
  2. SOMALGIN [Concomitant]
     Indication: ANGIOPATHY
     Dosage: 100 MG (ONE UNIT), 1X/DAY

REACTIONS (1)
  - Eye disorder [Unknown]
